FAERS Safety Report 12820194 (Version 5)
Quarter: 2016Q4

REPORT INFORMATION
  Report Type: Spontaneous
  Country: JP (occurrence: JP)
  Receive Date: 20161006
  Receipt Date: 20161109
  Transmission Date: 20170207
  Serious: Yes (Death, Hospitalization, Other)
  Sender: FDA-Public Use
  Company Number: PHJP2016JP015363

PATIENT
  Age: 70 Year
  Sex: Female

DRUGS (2)
  1. VOTRIENT [Suspect]
     Active Substance: PAZOPANIB HYDROCHLORIDE
     Indication: ANGIOSARCOMA
     Dosage: 800 MG, QD
     Route: 048
     Dates: start: 20140612, end: 20141128
  2. VOTRIENT [Suspect]
     Active Substance: PAZOPANIB HYDROCHLORIDE
     Dosage: UNK
     Route: 048
     Dates: start: 20141229, end: 20151007

REACTIONS (7)
  - Concomitant disease aggravated [Fatal]
  - Respiratory failure [Fatal]
  - Pyrexia [Recovered/Resolved]
  - Hypertension [Recovered/Resolved]
  - Pleural effusion [Fatal]
  - Pneumonia [Recovered/Resolved]
  - Malignant neoplasm progression [Fatal]

NARRATIVE: CASE EVENT DATE: 20140620
